FAERS Safety Report 4310492-4 (Version None)
Quarter: 2004Q1

REPORT INFORMATION
  Report Type: 
  Country: None (occurrence: None)
  Receive Date: 20040303
  Receipt Date: 20040224
  Transmission Date: 20041129
  Serious: Yes (Hospitalization)
  Sender: FDA-Public Use
  Company Number: PHBS2004BE02815

PATIENT
  Age: 63 Year
  Sex: Female

DRUGS (10)
  1. CARBAMAZEPINE [Suspect]
     Indication: COMPLEX PARTIAL SEIZURES
     Dosage: 800 MG/DAY
     Route: 065
  2. CLONAZEPAM [Concomitant]
     Dosage: 2 MG/DAY
     Route: 065
  3. TIAGABINE [Concomitant]
     Dosage: 30 MG/DAY
     Route: 065
  4. TIAGABINE [Concomitant]
     Dosage: 1000 MG/DAY
     Route: 065
     Dates: start: 20001212
  5. LEVETIRACETAM [Suspect]
     Dosage: 500 MG/DAY
     Route: 065
  6. LEVETIRACETAM [Suspect]
     Dosage: 1000 MG/DAY
     Route: 065
     Dates: start: 20020201
  7. LEVETIRACETAM [Suspect]
     Dosage: 1000 MG/DAY
     Route: 065
     Dates: start: 20020501
  8. LEVETIRACETAM [Suspect]
     Dosage: 1500 MG/DAY
     Route: 065
  9. LEVETIRACETAM [Suspect]
     Dosage: 1000 MG/DAY
     Route: 065
  10. SERTRALINE HCL [Concomitant]

REACTIONS (7)
  - ABDOMINAL PAIN UPPER [None]
  - C-REACTIVE PROTEIN INCREASED [None]
  - COMPLEX PARTIAL SEIZURES [None]
  - CONSTIPATION [None]
  - CONVULSION [None]
  - ENTEROCOLITIS [None]
  - WEIGHT DECREASED [None]
